FAERS Safety Report 5787582-2 (Version None)
Quarter: 2008Q2

REPORT INFORMATION
  Report Type: 
  Country: None (occurrence: None)
  Receive Date: 20080625
  Receipt Date: 20070928
  Transmission Date: 20081010
  Serious: No
  Sender: FDA-Public Use
  Company Number: US-ASTRAZENECA-2007UW22753

PATIENT
  Age: 70 Year
  Sex: Male
  Weight: 70.3 kg

DRUGS (6)
  1. PULMICORT-100 [Suspect]
     Indication: CHRONIC OBSTRUCTIVE PULMONARY DISEASE
     Route: 055
  2. SPIRIVA [Concomitant]
  3. ALBUTEROL [Concomitant]
  4. PREDNISONE [Concomitant]
  5. BONIVA [Concomitant]
  6. OXYGEN [Concomitant]

REACTIONS (1)
  - DYSPNOEA [None]
